FAERS Safety Report 25064080 (Version 3)
Quarter: 2025Q2

REPORT INFORMATION
  Report Type: Spontaneous
  Country: US (occurrence: US)
  Receive Date: 20250311
  Receipt Date: 20250414
  Transmission Date: 20250716
  Serious: Yes (Other)
  Sender: GILEAD
  Company Number: US-GILEAD-2025-0706681

PATIENT
  Age: 72 Year
  Sex: Male

DRUGS (1)
  1. EPCLUSA [Suspect]
     Active Substance: SOFOSBUVIR\VELPATASVIR
     Indication: Hepatitis C
     Route: 065
     Dates: start: 2024

REACTIONS (4)
  - Hepatitis C [Unknown]
  - Headache [Recovered/Resolved]
  - Hepatitis C virus test positive [Unknown]
  - Drug ineffective [Unknown]
